FAERS Safety Report 9701958 (Version 1)
Quarter: 2013Q4

REPORT INFORMATION
  Report Type: Spontaneous
  Country: CH (occurrence: None)
  Receive Date: 20131120
  Receipt Date: 20131120
  Transmission Date: 20140711
  Serious: Yes (Other)
  Sender: FDA-Public Use
  Company Number: 20130666

PATIENT
  Age: 78 Year
  Sex: Male

DRUGS (8)
  1. VENOFER [Suspect]
     Indication: IRON DEFICIENCY ANAEMIA
     Route: 042
     Dates: start: 20130918
  2. AMPRIL (RAMIPRIL) [Concomitant]
  3. ASPIRIN (ACETYLSALICYLIC ACID) [Concomitant]
  4. COMBODART [Concomitant]
  5. CONCOR (BISOPROLOL FUMARATE) [Concomitant]
  6. EDEMID (FUROSEMIDE) [Concomitant]
  7. TULIP (ATORVASTATIN CALCIUM, ATORVASTATIN, AMIODARONE) [Concomitant]
  8. ULTOP (OMEPRAZOLE) [Concomitant]

REACTIONS (2)
  - Thrombophlebitis [None]
  - Local swelling [None]
